FAERS Safety Report 11519042 (Version 1)
Quarter: 2015Q3

REPORT INFORMATION
  Report Type: Spontaneous
  Country: US (occurrence: US)
  Receive Date: 20150917
  Receipt Date: 20150917
  Transmission Date: 20151125
  Serious: No
  Sender: FDA-Public Use
  Company Number: US-ALLERGAN-1506178US

PATIENT
  Sex: Female

DRUGS (1)
  1. VANIQA [Suspect]
     Active Substance: EFLORNITHINE HYDROCHLORIDE
     Indication: HAIR GROWTH ABNORMAL
     Route: 061

REACTIONS (3)
  - Gingival pain [Recovered/Resolved]
  - Gingival swelling [Recovered/Resolved]
  - Lip blister [Recovered/Resolved]
